FAERS Safety Report 25522018 (Version 2)
Quarter: 2025Q3

REPORT INFORMATION
  Report Type: Spontaneous
  Country: EU (occurrence: EU)
  Receive Date: 20250706
  Receipt Date: 20250810
  Transmission Date: 20251021
  Serious: Yes (Hospitalization)
  Sender: ALEXION PHARMACEUTICALS
  Company Number: EU-DCGMA-25205438

PATIENT
  Age: 61 Year
  Sex: Male
  Weight: 89 kg

DRUGS (8)
  1. IMJUDO [Suspect]
     Active Substance: TREMELIMUMAB\TREMELIMUMAB-ACTL
     Indication: Hepatocellular carcinoma
     Dosage: 75 MILLIGRAM, Q3W, CURRENTLY 2ND DOSE
  2. IMFINZI [Suspect]
     Active Substance: DURVALUMAB
     Indication: Non-small cell lung cancer
     Dosage: 1500 MILLIGRAM, Q3W, CURRENTLY 2ND DOSE
  3. CARBOPLATIN [Concomitant]
     Active Substance: CARBOPLATIN
     Indication: Bronchial carcinoma
  4. PACLITAXEL [Concomitant]
     Active Substance: PACLITAXEL
     Indication: Bronchial carcinoma
  5. DIGITOXIN [Concomitant]
     Active Substance: DIGITOXIN
     Indication: Tachyarrhythmia
  6. APIXABAN [Concomitant]
     Active Substance: APIXABAN
     Indication: Tachyarrhythmia
  7. VERAPAMIL [Concomitant]
     Active Substance: VERAPAMIL HYDROCHLORIDE
     Indication: Tachyarrhythmia
  8. SPIRONOLACTONE [Concomitant]
     Active Substance: SPIRONOLACTONE
     Indication: Cardiac failure

REACTIONS (5)
  - Dyspnoea [Unknown]
  - Productive cough [Unknown]
  - Peripheral circulatory failure [Unknown]
  - Chills [Unknown]
  - Thrombocytopenia [Unknown]

NARRATIVE: CASE EVENT DATE: 20250601
